FAERS Safety Report 6247221-3 (Version None)
Quarter: 2009Q2

REPORT INFORMATION
  Report Type: 
  Country: None (occurrence: None)
  Receive Date: 20090626
  Receipt Date: 20090615
  Transmission Date: 20091009
  Serious: Yes (Hospitalization, Other)
  Sender: FDA-Public Use
  Company Number: US-PFIZER INC-2009214659

PATIENT
  Sex: Female
  Weight: 113 kg

DRUGS (9)
  1. LIPITOR [Suspect]
     Indication: BLOOD CHOLESTEROL INCREASED
     Dosage: 10 MG, 1X/DAY
     Route: 048
     Dates: start: 20050101
  2. LIPITOR [Suspect]
     Indication: HYPERLIPIDAEMIA
  3. COUMADIN [Concomitant]
     Indication: THROMBOSIS
     Dosage: UNK
  4. DIURETICS [Concomitant]
     Dosage: UNK
  5. TOPROL-XL [Concomitant]
     Dosage: UNK
  6. LISINOPRIL [Concomitant]
     Dosage: UNK
  7. ALLOPURINOL [Concomitant]
     Dosage: UNK
  8. LASIX [Concomitant]
     Dosage: UNK
  9. POTASSIUM [Concomitant]
     Dosage: UNK

REACTIONS (2)
  - HYPOTHYROIDISM [None]
  - ILL-DEFINED DISORDER [None]
